FAERS Safety Report 6470541-4 (Version None)
Quarter: 2009Q4

REPORT INFORMATION
  Report Type: 
  Country: None (occurrence: None)
  Receive Date: 20091203
  Receipt Date: 20091124
  Transmission Date: 20100525
  Serious: Yes (Other)
  Sender: FDA-Public Use
  Company Number: DK-PFIZER INC-2009280745

PATIENT
  Sex: Male

DRUGS (8)
  1. LYRICA [Suspect]
     Dosage: 300 MG, 2X/DAY
     Dates: start: 20050602, end: 20080731
  2. AMITRIPTYLINE [Concomitant]
     Indication: PAIN
     Dosage: 50 MG, 1X/DAY
     Dates: start: 20050216
  3. MORFIN [Concomitant]
     Indication: PAIN
     Dosage: 10 MG, AS NEEDED
     Dates: start: 20050216
  4. GABAPENTIN [Concomitant]
     Indication: PAIN
     Dosage: 1200 MG, 3X/DAY
     Dates: start: 20050228
  5. MANDOLGIN - SLOW RELEASE [Concomitant]
     Indication: PAIN
     Dosage: 200 MG, 2X/DAY
     Dates: start: 20050303
  6. APYDAN [Concomitant]
     Indication: PAIN
     Dosage: 300 MG, 2X/DAY
     Dates: start: 20050321
  7. CENTYL [Concomitant]
     Dosage: UNK
     Dates: end: 20090904
  8. CIPRALEX [Concomitant]
     Dosage: UNK
     Dates: end: 20090904

REACTIONS (3)
  - BLOOD SODIUM DECREASED [None]
  - DIZZINESS [None]
  - FATIGUE [None]
